FAERS Safety Report 6993029-0 (Version None)
Quarter: 2010Q3

REPORT INFORMATION
  Report Type: 
  Country: None (occurrence: None)
  Receive Date: 20100917
  Receipt Date: 20100913
  Transmission Date: 20110219
  Serious: Yes (Hospitalization)
  Sender: FDA-Public Use
  Company Number: US-RB-014240-10

PATIENT
  Age: 26 Year
  Sex: Male

DRUGS (3)
  1. SUBOXONE [Suspect]
     Indication: DRUG DEPENDENCE
     Route: 060
     Dates: start: 20080101, end: 20081001
  2. CHANTIX [Concomitant]
     Indication: NICOTINE DEPENDENCE
     Dosage: DOSING DETAILS UNKNOWN
     Route: 065
  3. PHENOBARBITAL [Concomitant]
     Indication: EPILEPSY
     Dosage: NO OTHER DOSING DETAILS KNOWN
     Route: 065

REACTIONS (5)
  - CONVULSION [None]
  - HEADACHE [None]
  - MULTIPLE FRACTURES [None]
  - PAIN [None]
  - ROAD TRAFFIC ACCIDENT [None]
